FAERS Safety Report 21982681 (Version 3)
Quarter: 2023Q2

REPORT INFORMATION
  Report Type: Report from Study
  Country: US (occurrence: US)
  Receive Date: 20230213
  Receipt Date: 20230604
  Transmission Date: 20230721
  Serious: Yes (Death, Hospitalization, Other)
  Sender: FDA-Public Use
  Company Number: US-ABBVIE-4303825

PATIENT
  Age: 58 Year
  Sex: Female

DRUGS (2)
  1. HUMIRA [Suspect]
     Active Substance: ADALIMUMAB
     Indication: Colitis ulcerative
     Dosage: CITRATE FREE?FORM STRENGTH: 40 MILLIGRAM
     Route: 058
     Dates: start: 20170426, end: 202302
  2. HUMIRA [Suspect]
     Active Substance: ADALIMUMAB
     Route: 058
     Dates: start: 2023

REACTIONS (11)
  - Cardiac arrest [Fatal]
  - Illness [Recovering/Resolving]
  - Hepatic cirrhosis [Unknown]
  - Ankle fracture [Not Recovered/Not Resolved]
  - Intestinal ischaemia [Unknown]
  - Hypoxia [Fatal]
  - Blood potassium decreased [Unknown]
  - Ammonia increased [Unknown]
  - Lower limb fracture [Not Recovered/Not Resolved]
  - Renal impairment [Unknown]
  - Confusional state [Unknown]

NARRATIVE: CASE EVENT DATE: 20221201
